FAERS Safety Report 8268677-0 (Version None)
Quarter: 2012Q2

REPORT INFORMATION
  Report Type: 
  Country: None (occurrence: None)
  Receive Date: 20120409
  Receipt Date: 20120407
  Transmission Date: 20120825
  Serious: No
  Sender: FDA-Public Use
  Company Number: US-PFIZER INC-2012087568

PATIENT
  Sex: Male
  Weight: 71.7 kg

DRUGS (2)
  1. CELEBREX [Suspect]
     Indication: MYALGIA
     Dosage: 200 MG, DAILY
     Dates: start: 20120402, end: 20120407
  2. SYNTHROID [Concomitant]
     Indication: HYPOTHYROIDISM
     Dosage: UNK

REACTIONS (2)
  - OROPHARYNGEAL PAIN [None]
  - THROAT TIGHTNESS [None]
